FAERS Safety Report 11390494 (Version 2)
Quarter: 2015Q4

REPORT INFORMATION
  Report Type: Spontaneous
  Country: JP (occurrence: JP)
  Receive Date: 20150818
  Receipt Date: 20151221
  Transmission Date: 20160304
  Serious: Yes (Death, Other)
  Sender: FDA-Public Use
  Company Number: JP-ROCHE-1617022

PATIENT
  Age: 46 Year
  Sex: Female
  Weight: 46 kg

DRUGS (9)
  1. DENOTAS [Concomitant]
     Active Substance: CALCIUM CARBONATE\CHOLECALCIFEROL\MAGNESIUM CARBONATE
     Route: 048
     Dates: start: 20150226, end: 20150726
  2. LOXOPROFEN [Concomitant]
     Active Substance: LOXOPROFEN
     Route: 048
     Dates: start: 20150629, end: 20150726
  3. VITAMEDIN (JAPAN) [Concomitant]
     Route: 048
     Dates: start: 20141117, end: 20150726
  4. URSODEOXYCHOLIC ACID [Concomitant]
     Active Substance: URSODIOL
     Route: 048
     Dates: start: 20141006, end: 20150726
  5. GLYCYRON [Concomitant]
     Active Substance: AMMONIUM GLYCYRRHIZATE\GLYCINE\METHIONINE
     Route: 048
     Dates: start: 20141006, end: 20150726
  6. NEXIUM [Concomitant]
     Active Substance: ESOMEPRAZOLE MAGNESIUM
     Route: 048
     Dates: start: 20141113, end: 20150726
  7. RANMARK [Concomitant]
     Active Substance: DENOSUMAB
     Route: 058
  8. AVASTIN [Suspect]
     Active Substance: BEVACIZUMAB
     Indication: OVARIAN CANCER
     Route: 041
     Dates: start: 20150723, end: 20150723
  9. TEPRENONE [Concomitant]
     Active Substance: TEPRENONE
     Route: 048
     Dates: start: 20141117, end: 20150726

REACTIONS (8)
  - Haemorrhagic cerebral infarction [Unknown]
  - Brain herniation [Unknown]
  - Aspiration [Unknown]
  - Ovarian cancer [Fatal]
  - Hypercoagulation [Unknown]
  - Cerebral infarction [Fatal]
  - Cardiac neoplasm unspecified [Unknown]
  - Embolism [Unknown]

NARRATIVE: CASE EVENT DATE: 20150726
